FAERS Safety Report 7417857-2 (Version None)
Quarter: 2011Q2

REPORT INFORMATION
  Report Type: 
  Country: None (occurrence: None)
  Receive Date: 20110412
  Receipt Date: 20110412
  Transmission Date: 20111010
  Serious: Yes (Other)
  Sender: FDA-Public Use
  Company Number: None

PATIENT
  Sex: Male

DRUGS (1)
  1. BETAMETHASONE VALERATE [Suspect]

REACTIONS (12)
  - PUSTULAR PSORIASIS [None]
  - RASH PRURITIC [None]
  - CONSTIPATION [None]
  - INSOMNIA [None]
  - RASH PUSTULAR [None]
  - HYPERSENSITIVITY [None]
  - BLOOD CHOLESTEROL INCREASED [None]
  - CEREBROVASCULAR ACCIDENT [None]
  - RASH PAPULAR [None]
  - CONDITION AGGRAVATED [None]
  - DRUG INEFFECTIVE [None]
  - SWELLING [None]
